FAERS Safety Report 9242646 (Version 1)
Quarter: 2013Q2

REPORT INFORMATION
  Report Type: Spontaneous
  Country: IE (occurrence: IE)
  Receive Date: 20130419
  Receipt Date: 20130419
  Transmission Date: 20140414
  Serious: Yes (Other)
  Sender: FDA-Public Use
  Company Number: IE-PERRIGO-13IE003892

PATIENT
  Age: 71 Year
  Sex: Female

DRUGS (4)
  1. MICONAZOLE NITRATE 4% 070 [Suspect]
     Indication: PRODUCT USED FOR UNKNOWN INDICATION
     Dosage: UNK
     Route: 061
  2. WARFARIN [Suspect]
     Indication: EMBOLISM VENOUS
     Dosage: 0.75 MG
     Route: 048
  3. CLARITHROMYCIN [Concomitant]
     Indication: PRODUCT USED FOR UNKNOWN INDICATION
     Dosage: UNK
     Route: 065
  4. MYCOSTATIN [Concomitant]
     Indication: PRODUCT USED FOR UNKNOWN INDICATION
     Route: 065

REACTIONS (3)
  - Drug interaction [Recovering/Resolving]
  - Haematuria [Recovered/Resolved]
  - International normalised ratio increased [Unknown]
